FAERS Safety Report 23033382 (Version 2)
Quarter: 2023Q4

REPORT INFORMATION
  Report Type: Spontaneous
  Country: US (occurrence: US)
  Receive Date: 20231005
  Receipt Date: 20231009
  Transmission Date: 20240110
  Serious: Yes (Death, Hospitalization)
  Sender: FDA-Public Use
  Company Number: US-PFIZER INC-202300310889

PATIENT
  Age: 85 Year
  Sex: Male
  Weight: 68.027 kg

DRUGS (2)
  1. VYNDAMAX [Suspect]
     Active Substance: TAFAMIDIS
     Indication: Amyloidosis
     Dosage: 61 MG, 1X/DAY
     Route: 048
     Dates: start: 2021
  2. PATISIRAN [Concomitant]
     Active Substance: PATISIRAN
     Indication: Amyloidosis
     Dosage: INFUSIONS EVERY THREE WEEKS

REACTIONS (3)
  - Death [Fatal]
  - Fall [Unknown]
  - Dysphagia [Unknown]

NARRATIVE: CASE EVENT DATE: 20230914
